FAERS Safety Report 9310898 (Version 2)
Quarter: 2013Q2

REPORT INFORMATION
  Report Type: Spontaneous
  Country: US (occurrence: US)
  Receive Date: 20130528
  Receipt Date: 20130628
  Transmission Date: 20140414
  Serious: Yes (Hospitalization)
  Sender: FDA-Public Use
  Company Number: US-GENZYME-POMP-1003016

PATIENT
  Age: 46 Year
  Sex: Female

DRUGS (1)
  1. LUMIZYME [Suspect]
     Indication: GLYCOGEN STORAGE DISEASE TYPE II
     Dosage: 1150 MG, Q2W
     Route: 042
     Dates: start: 20100810

REACTIONS (3)
  - Gastritis [Unknown]
  - Pyrexia [Unknown]
  - Bacterial food poisoning [Unknown]
